FAERS Safety Report 16417856 (Version 1)
Quarter: 2019Q2

REPORT INFORMATION
  Report Type: Spontaneous
  Country: HU (occurrence: HU)
  Receive Date: 20190611
  Receipt Date: 20190611
  Transmission Date: 20190711
  Serious: Yes (Hospitalization)
  Sender: FDA-Public Use
  Company Number: PHHY2019HU115583

PATIENT

DRUGS (4)
  1. VALERIANA OFFI+MELISSA OFFI [Suspect]
     Active Substance: MELISSA OFFICINALIS\VALERIAN
     Indication: SUICIDE ATTEMPT
     Dosage: 5000 MG, UNK
     Route: 065
  2. CARBAMAZEPINE. [Suspect]
     Active Substance: CARBAMAZEPINE
     Indication: SUICIDE ATTEMPT
     Dosage: 10000 MG, UNK
     Route: 065
  3. PHENYTOIN SODIUM. [Suspect]
     Active Substance: PHENYTOIN SODIUM
     Indication: SUICIDE ATTEMPT
     Dosage: 5000 MG, UNK
     Route: 065
  4. PHENOBARBITAL. [Suspect]
     Active Substance: PHENOBARBITAL
     Indication: SUICIDE ATTEMPT
     Dosage: 1000 MG, UNK
     Route: 065

REACTIONS (3)
  - Poisoning deliberate [Unknown]
  - Maternal exposure during pregnancy [Unknown]
  - Suicide attempt [Unknown]
